FAERS Safety Report 21904801 (Version 1)
Quarter: 2023Q1

REPORT INFORMATION
  Report Type: Spontaneous
  Country: US (occurrence: None)
  Receive Date: 20230124
  Receipt Date: 20230124
  Transmission Date: 20230418
  Serious: No
  Sender: FDA-Public Use
  Company Number: None

PATIENT
  Sex: Female
  Weight: 75.75 kg

DRUGS (27)
  1. TEMOZOLOMIDE [Suspect]
     Active Substance: TEMOZOLOMIDE
     Indication: Metastases to lung
     Dosage: OTHER FREQUENCY : DAYS 10-14;  28 DAY CYCLE?
     Route: 048
  2. CAPECITABINE [Suspect]
     Active Substance: CAPECITABINE
     Indication: Metastases to lung
     Dosage: FREQUENCY : TWICE A DAY; 14 DAYS ON 7 DAYS OFF?
     Route: 048
  3. FLUDROCORTISONE [Concomitant]
     Active Substance: FLUDROCORTISONE
  4. FOSAMAX [Concomitant]
     Active Substance: ALENDRONATE SODIUM
  5. LANREOTIDE [Concomitant]
     Active Substance: LANREOTIDE
  6. LIPITOR [Concomitant]
     Active Substance: ATORVASTATIN CALCIUM
  7. MAGNESIUM OXIDE [Concomitant]
     Active Substance: MAGNESIUM OXIDE
  8. MECLIZINE [Concomitant]
     Active Substance: MECLIZINE HYDROCHLORIDE
  9. MIRALAX [Concomitant]
     Active Substance: POLYETHYLENE GLYCOL 3350
  10. NARCAN [Concomitant]
     Active Substance: NALOXONE HYDROCHLORIDE
  11. ONDANSETRON [Concomitant]
     Active Substance: ONDANSETRON
  12. OS-CAL EXTRA D3 [Concomitant]
  13. OXYCODONE [Concomitant]
     Active Substance: OXYCODONE
  14. PREDNISONE [Concomitant]
     Active Substance: PREDNISONE
  15. PROCHLORPERAZINE [Concomitant]
     Active Substance: PROCHLORPERAZINE
  16. SANDOSTATIN [Concomitant]
     Active Substance: OCTREOTIDE ACETATE
  17. TRULANCE [Concomitant]
     Active Substance: PLECANATIDE
  18. TYLENOL 8HR [Concomitant]
     Active Substance: ACETAMINOPHEN
  19. VALSTAR [Concomitant]
     Active Substance: VALRUBICIN
  20. VITAMIN B COMPLEX AND ASCORBIC ACID [Concomitant]
  21. VITAMIN C [Concomitant]
     Active Substance: ASCORBIC ACID
  22. VITAMIN K1 [Concomitant]
     Active Substance: PHYTONADIONE
  23. AMLODIPINE [Concomitant]
     Active Substance: AMLODIPINE BESYLATE
  24. CALCIUM CARBONATE [Concomitant]
     Active Substance: CALCIUM CARBONATE
  25. CALTRATE [Concomitant]
     Active Substance: CALCIUM CARBONATE
  26. CEFAZOLIN [Concomitant]
     Active Substance: CEFAZOLIN
  27. DEXAMETHASONE [Concomitant]
     Active Substance: DEXAMETHASONE

REACTIONS (1)
  - Disease progression [None]
